FAERS Safety Report 6515982-1 (Version None)
Quarter: 2009Q4

REPORT INFORMATION
  Report Type: 
  Country: None (occurrence: None)
  Receive Date: 20091223
  Receipt Date: 20091215
  Transmission Date: 20100525
  Serious: Yes (Hospitalization)
  Sender: FDA-Public Use
  Company Number: FR-ELI_LILLY_AND_COMPANY-FR200912003423

PATIENT
  Sex: Male
  Weight: 63 kg

DRUGS (8)
  1. PEMETREXED [Suspect]
     Indication: NON-SMALL CELL LUNG CANCER
     Dosage: 500 MG/M2, ON D1 EVERY 21 DAYS
     Route: 042
     Dates: start: 20090716
  2. CISPLATIN [Suspect]
     Indication: NON-SMALL CELL LUNG CANCER
     Dosage: 75 MG/M2, ON D1 EVERY 21 DAYS
     Route: 042
     Dates: start: 20090716, end: 20090915
  3. FOLIC ACID [Concomitant]
     Indication: PROPHYLAXIS
     Dates: start: 20090708
  4. VIT B12 [Concomitant]
     Indication: PROPHYLAXIS
     Dates: start: 20090708
  5. DEXAMETHASONE TAB [Concomitant]
     Indication: PROPHYLAXIS
     Dates: start: 20090715
  6. PARACETAMOL [Concomitant]
     Indication: MUSCULOSKELETAL PAIN
     Dates: start: 20090803
  7. OXYCODON [Concomitant]
     Indication: MUSCULOSKELETAL PAIN
     Dates: start: 20090805
  8. DUPHALAC [Concomitant]
     Indication: CONSTIPATION
     Dates: start: 20090401

REACTIONS (1)
  - DYSPNOEA [None]
